FAERS Safety Report 9306574 (Version 1)
Quarter: 2013Q1

REPORT INFORMATION
  Report Type: Spontaneous
  Country: GB (occurrence: None)
  Receive Date: 20130206
  Receipt Date: 20130206
  Transmission Date: 20140127
  Serious: Yes (Other)
  Sender: FDA-Public Use
  Company Number: 7120627

PATIENT
  Age: 43 Year
  Sex: 0
  Weight: 60 kg

DRUGS (1)
  1. REBIF (INTERFERON BETA-1A) [Suspect]
     Indication: MULTIPLE SCLEROSIS
     Dates: start: 2007

REACTIONS (11)
  - Renal failure acute [None]
  - Pulmonary oedema [None]
  - Thrombotic microangiopathy [None]
  - Haemolytic uraemic syndrome [None]
  - Thrombocytopenic purpura [None]
  - Decreased appetite [None]
  - Weight decreased [None]
  - Hypertension [None]
  - Blood lactate dehydrogenase increased [None]
  - Red cell fragmentation syndrome [None]
  - Haemodialysis [None]
